FAERS Safety Report 6853349-7 (Version None)
Quarter: 2010Q3

REPORT INFORMATION
  Report Type: 
  Country: None (occurrence: None)
  Receive Date: 20100717
  Receipt Date: 20071206
  Transmission Date: 20110219
  Serious: No
  Sender: FDA-Public Use
  Company Number: US-PFIZER INC-2007103317

PATIENT
  Sex: Male

DRUGS (2)
  1. CHANTIX [Suspect]
  2. LEXAPRO [Concomitant]

REACTIONS (1)
  - FEELING ABNORMAL [None]
